FAERS Safety Report 15055209 (Version 1)
Quarter: 2018Q2

REPORT INFORMATION
  Report Type: Spontaneous
  Country: GB (occurrence: GB)
  Receive Date: 20180622
  Receipt Date: 20180622
  Transmission Date: 20180711
  Serious: Yes (Hospitalization, Other)
  Sender: FDA-Public Use
  Company Number: GB-009507513-1802GBR009378

PATIENT
  Age: 72 Year
  Sex: Male

DRUGS (14)
  1. ACETAMINOPHEN. [Concomitant]
     Active Substance: ACETAMINOPHEN
     Dosage: 1 G MAX 4 G IN 24HOURS, WHEN REQUIRED
     Route: 048
  2. LATANOPROST. [Concomitant]
     Active Substance: LATANOPROST
     Indication: GLAUCOMA
     Dosage: AS DIRECTED
     Route: 047
  3. RAMIPRIL. [Concomitant]
     Active Substance: RAMIPRIL
     Dosage: 2.5 MG, BID
     Route: 048
  4. SINEMET [Suspect]
     Active Substance: CARBIDOPA\LEVODOPA
     Indication: PARKINSONISM
     Dosage: 12.5/50 MG, TDS
     Route: 048
     Dates: start: 20171101, end: 20171124
  5. APIXABAN [Concomitant]
     Active Substance: APIXABAN
     Dosage: 5 MG, BD, FOR ONE YEAR
     Route: 048
  6. GTN [Concomitant]
     Active Substance: NITROGLYCERIN
     Dosage: 400 MCG SPRAY (ONE TO TWO PUFFS), WHEN REQUIRED
     Route: 060
  7. MIGRALEVE (SUMATRIPTAN SUCCINATE) [Concomitant]
  8. ASPIRIN. [Concomitant]
     Active Substance: ASPIRIN
  9. CYANOCOBALAMIN. [Concomitant]
     Active Substance: CYANOCOBALAMIN
     Dosage: 50 MICROGRAM, QOD
     Route: 048
  10. OMEPRAZOLE. [Concomitant]
     Active Substance: OMEPRAZOLE
  11. RAMIPRIL. [Concomitant]
     Active Substance: RAMIPRIL
     Dosage: 2.5 MG, ONCE A DAY
     Route: 048
  12. ATORVASTATIN [Concomitant]
     Active Substance: ATORVASTATIN
     Dosage: 20 MG, QPM
     Route: 048
  13. CYANOCOBALAMIN. [Concomitant]
     Active Substance: CYANOCOBALAMIN
     Dosage: 50 MG, ONCE A DAY
     Route: 048
  14. PROPRANOLOL HYDROCHLORIDE. [Concomitant]
     Active Substance: PROPRANOLOL HYDROCHLORIDE
     Dosage: 80 MG, TWICE A DAY

REACTIONS (14)
  - Troponin increased [Unknown]
  - Cardiac disorder [Unknown]
  - Left ventricular failure [Unknown]
  - Blood bilirubin increased [Unknown]
  - Right ventricular enlargement [Unknown]
  - Atrial enlargement [Unknown]
  - Blood creatine phosphokinase increased [Unknown]
  - Seizure [Recovered/Resolved]
  - Right ventricular failure [Unknown]
  - Tricuspid valve incompetence [Unknown]
  - Confusional state [Recovering/Resolving]
  - Mitral valve incompetence [Unknown]
  - Aggression [Unknown]
  - Blood iron decreased [Unknown]

NARRATIVE: CASE EVENT DATE: 201711
